FAERS Safety Report 5301753-0 (Version None)
Quarter: 2007Q2

REPORT INFORMATION
  Report Type: 
  Country: None (occurrence: None)
  Receive Date: 20070419
  Receipt Date: 20070412
  Transmission Date: 20071010
  Serious: Yes (Other)
  Sender: FDA-Public Use
  Company Number: US-JNJFOC-20051102205

PATIENT
  Sex: Female
  Weight: 64.7 kg

DRUGS (1)
  1. RISPERDAL [Suspect]
     Indication: DRUG USE FOR UNKNOWN INDICATION
     Dates: start: 19990901, end: 20000701

REACTIONS (1)
  - DIABETES MELLITUS INSULIN-DEPENDENT [None]
